FAERS Safety Report 5369603-4 (Version None)
Quarter: 2007Q2

REPORT INFORMATION
  Report Type: 
  Country: None (occurrence: None)
  Receive Date: 20070625
  Receipt Date: 20070611
  Transmission Date: 20071010
  Serious: Yes (Other)
  Sender: FDA-Public Use
  Company Number: GB-BAUSCH-2006BL001433

PATIENT
  Age: 74 Year
  Sex: Female

DRUGS (9)
  1. MINIMS CHLORAMPHENICOL 0.5% [Suspect]
     Route: 047
  2. PREDNISOLONE SODIUM PHOSPHATE [Suspect]
     Route: 047
  3. LIGNOCAINE [Suspect]
     Indication: LOCAL ANAESTHESIA
     Route: 031
  4. BUPIVACAINE [Suspect]
     Indication: LOCAL ANAESTHESIA
     Route: 031
  5. HYALURONIDASE [Suspect]
     Indication: LOCAL ANAESTHESIA
     Route: 031
  6. POVIDONE IODINE [Suspect]
     Indication: PROPHYLAXIS
     Route: 047
  7. CEFUROXIME [Suspect]
     Indication: DRUG USE FOR UNKNOWN INDICATION
     Route: 057
  8. CEFUROXIME [Suspect]
     Route: 031
  9. MINIMS PROXYMETACAINE 0.5% [Suspect]
     Indication: LOCAL ANAESTHESIA
     Route: 047

REACTIONS (5)
  - CONJUNCTIVAL OEDEMA [None]
  - EXOPHTHALMOS [None]
  - INTRAOCULAR PRESSURE INCREASED [None]
  - PAROPHTHALMIA [None]
  - VISUAL ACUITY REDUCED [None]
